FAERS Safety Report 13987386 (Version 3)
Quarter: 2018Q1

REPORT INFORMATION
  Report Type: Spontaneous
  Country: DE (occurrence: DE)
  Receive Date: 20170919
  Receipt Date: 20180207
  Transmission Date: 20180508
  Serious: Yes (Death, Other)
  Sender: FDA-Public Use
  Company Number: DE-TEVA-802907GER

PATIENT
  Age: 76 Year
  Sex: Female
  Weight: 65 kg

DRUGS (12)
  1. RAMILICH 2.5 [Concomitant]
     Dosage: 1-0-0
  2. NEUROPLANT [Concomitant]
     Dosage: 0-0-1
  3. CLOPIDOGREL 75 [Concomitant]
     Dates: start: 20170727, end: 20170727
  4. SIMVA 20 [Concomitant]
     Dosage: 0-0-1
  5. SPIRONOLACTON 50 [Concomitant]
     Dosage: 0.5-0-0
  6. METOPROLOL 95 [Concomitant]
     Dosage: 1-0-0.5
  7. METFORMIN 1000 [Concomitant]
     Active Substance: METFORMIN HYDROCHLORIDE
     Dosage: 1-0-1
  8. TONUM 10 [Concomitant]
  9. HEPARIN-NATRIUM-25 000-RATIOPHARM [Suspect]
     Active Substance: HEPARIN SODIUM
     Dosage: 40000 IU (INTERNATIONAL UNIT) DAILY;
     Route: 065
     Dates: start: 20170728, end: 20170728
  10. LANTUS [Concomitant]
     Active Substance: INSULIN GLARGINE
  11. TRANEXAMIC ACID. [Suspect]
     Active Substance: TRANEXAMIC ACID
     Route: 065
     Dates: start: 20170728, end: 20170728
  12. ASS 100 [Concomitant]
     Active Substance: ASPIRIN
     Dosage: 0-1-0

REACTIONS (3)
  - Vasodilatation [Unknown]
  - Haemoglobin increased [Unknown]
  - Multiple organ dysfunction syndrome [Fatal]

NARRATIVE: CASE EVENT DATE: 20170728
